FAERS Safety Report 19651289 (Version 5)
Quarter: 2021Q4

REPORT INFORMATION
  Report Type: Spontaneous
  Country: GB (occurrence: GB)
  Receive Date: 20210803
  Receipt Date: 20211104
  Transmission Date: 20220303
  Serious: Yes (Hospitalization)
  Sender: FDA-Public Use
  Company Number: GB-MAYNE PHARMA-2021MYN000484

PATIENT

DRUGS (21)
  1. TAMOXIFEN CITRATE [Suspect]
     Active Substance: TAMOXIFEN CITRATE
     Indication: Breast cancer metastatic
     Dosage: UNK UNK, QD
     Route: 048
     Dates: start: 201603
  2. TRASTUZUMAB [Suspect]
     Active Substance: TRASTUZUMAB
     Indication: Breast cancer metastatic
     Dosage: 651 MG, ONCE IN THREE WEEKS (LOADING DOSE)
     Route: 042
     Dates: start: 20160323, end: 20160323
  3. TRASTUZUMAB [Suspect]
     Active Substance: TRASTUZUMAB
     Dosage: 483 MG, ONCE IN THREE WEEKS
     Route: 042
     Dates: start: 20160413
  4. TRASTUZUMAB [Suspect]
     Active Substance: TRASTUZUMAB
     Dosage: 420MG, EVERY 3 WEEKS
     Route: 042
  5. DOCETAXEL [Suspect]
     Active Substance: DOCETAXEL
     Indication: Breast cancer metastatic
     Dosage: 140 MG, CYCLIC (ONCE IN 2 WEEKS)
     Route: 042
     Dates: start: 20160324, end: 20160526
  6. DOCETAXEL [Suspect]
     Active Substance: DOCETAXEL
     Dosage: 110 MG, CYCLIC (EVERY 2 WEEKS)
     Route: 042
     Dates: start: 20160526, end: 20160707
  7. PERTUZUMAB [Suspect]
     Active Substance: PERTUZUMAB
     Indication: Breast cancer metastatic
     Dosage: 840 MG, CYCLIC (LOADING DOSE, EVERY 1 DAY)
     Route: 042
     Dates: start: 20160324, end: 20160324
  8. PERTUZUMAB [Suspect]
     Active Substance: PERTUZUMAB
     Dosage: 420 MG, Q3W
     Route: 042
  9. PERTUZUMAB [Suspect]
     Active Substance: PERTUZUMAB
     Dosage: 420 MG, Q3W;
     Route: 042
     Dates: start: 20160413
  10. CITALOPRAM [Concomitant]
     Active Substance: CITALOPRAM HYDROBROMIDE
     Indication: Metastases to bone
     Dosage: 120 MG, UNK
     Route: 065
     Dates: start: 20160323
  11. CITALOPRAM [Concomitant]
     Active Substance: CITALOPRAM HYDROBROMIDE
     Indication: Breast cancer metastatic
     Dosage: 6 MG, UNK
     Route: 065
     Dates: start: 20191113
  12. DALTEPARIN [Concomitant]
     Active Substance: DALTEPARIN
     Indication: Breast cancer metastatic
     Dosage: 120 MG, UNK
     Route: 065
  13. DALTEPARIN [Concomitant]
     Active Substance: DALTEPARIN
     Indication: Metastases to bone
     Dosage: 20 MG, UNK
     Route: 065
     Dates: start: 20160324
  14. DEXAMETHASONE [Concomitant]
     Active Substance: DEXAMETHASONE
     Indication: Metastases to bone
     Dosage: 20 MG, UNK
     Route: 065
     Dates: start: 20160324
  15. DEXAMETHASONE [Concomitant]
     Active Substance: DEXAMETHASONE
     Indication: Dyspepsia
     Dosage: UNK
     Route: 065
  16. DENOSUMAB [Concomitant]
     Active Substance: DENOSUMAB
     Indication: Breast cancer metastatic
     Dosage: 6 MG
     Route: 065
     Dates: start: 20191113
  17. DENOSUMAB [Concomitant]
     Active Substance: DENOSUMAB
     Indication: Dyspepsia
     Dosage: 20 MG
     Route: 065
     Dates: start: 20190727
  18. ACETAMINOPHEN [Concomitant]
     Active Substance: ACETAMINOPHEN
     Indication: Dyspepsia
     Dosage: UNK
     Route: 065
  19. ACETAMINOPHEN [Concomitant]
     Active Substance: ACETAMINOPHEN
     Indication: Thrombosis prophylaxis
     Dosage: 5000 IU, UNK
     Route: 065
     Dates: start: 20160802
  20. OMEPRAZOLE [Concomitant]
     Active Substance: OMEPRAZOLE
     Indication: Dyspepsia
     Dosage: 20 MG, UNK
     Route: 065
     Dates: start: 20190727
  21. OMEPRAZOLE [Concomitant]
     Active Substance: OMEPRAZOLE
     Indication: Thrombosis prophylaxis
     Dosage: 20 MG, UNK
     Route: 065
     Dates: start: 201003

REACTIONS (8)
  - Joint stiffness [Recovered/Resolved]
  - Infection [Recovered/Resolved]
  - Musculoskeletal stiffness [Recovered/Resolved]
  - Atrophic vulvovaginitis [Recovered/Resolved]
  - Atrial thrombosis [Recovered/Resolved]
  - Influenza like illness [Recovered/Resolved]
  - Fatigue [Recovered/Resolved]
  - Diarrhoea [Not Recovered/Not Resolved]

NARRATIVE: CASE EVENT DATE: 20160324
